FAERS Safety Report 5979761-6 (Version None)
Quarter: 2008Q4

REPORT INFORMATION
  Report Type: 
  Country: None (occurrence: None)
  Receive Date: 20081204
  Receipt Date: 20080219
  Transmission Date: 20090506
  Serious: No
  Sender: FDA-Public Use
  Company Number: US-AMGEN-KDL266121

PATIENT
  Sex: Female

DRUGS (3)
  1. ENBREL [Suspect]
     Indication: RHEUMATOID ARTHRITIS
     Route: 058
     Dates: start: 20070815
  2. METHOTREXATE [Concomitant]
     Dates: start: 20020101
  3. HYDROXYCHLOROQUINE SULFATE [Concomitant]
     Dates: start: 19970101

REACTIONS (3)
  - NASAL CONGESTION [None]
  - NASOPHARYNGITIS [None]
  - OROPHARYNGEAL PAIN [None]
